FAERS Safety Report 7947901-5 (Version None)
Quarter: 2011Q4

REPORT INFORMATION
  Report Type: 
  Country: None (occurrence: None)
  Receive Date: 20111121
  Receipt Date: 20111108
  Transmission Date: 20120403
  Serious: Yes (Hospitalization)
  Sender: FDA-Public Use
  Company Number: B0763296A

PATIENT
  Age: 25 Year
  Sex: Female

DRUGS (3)
  1. ZANTAC [Suspect]
     Indication: PEPTIC ULCER
     Dosage: INTRAVENOUS
     Route: 042
  2. ZANTAC [Suspect]
     Indication: TENDONITIS
     Dosage: ORAL
     Route: 048
  3. ACECLOFENAC [Concomitant]

REACTIONS (13)
  - LOSS OF CONSCIOUSNESS [None]
  - URTICARIA [None]
  - RASH [None]
  - PULSE ABSENT [None]
  - AURICULAR SWELLING [None]
  - PRURITUS [None]
  - BLOOD PRESSURE ABNORMAL [None]
  - THROAT TIGHTNESS [None]
  - DYSPNOEA [None]
  - ERYTHEMA [None]
  - RESPIRATORY ARREST [None]
  - TYPE I HYPERSENSITIVITY [None]
  - HEADACHE [None]
